FAERS Safety Report 5225946-6 (Version None)
Quarter: 2007Q1

REPORT INFORMATION
  Report Type: 
  Country: None (occurrence: None)
  Receive Date: 20070201
  Receipt Date: 20070125
  Transmission Date: 20070707
  Serious: Yes (Hospitalization)
  Sender: FDA-Public Use
  Company Number: FR-BAYER-200710068BFR

PATIENT
  Age: 98 Year
  Sex: Female

DRUGS (9)
  1. CIPROFLOXACIN [Suspect]
     Indication: URINARY TRACT INFECTION
     Dosage: TOTAL DAILY DOSE: 1 G  UNIT DOSE: 500 MG
     Route: 048
     Dates: start: 20060912
  2. SINTROM [Interacting]
     Indication: ATRIAL FIBRILLATION
     Dosage: TOTAL DAILY DOSE: 3 MG
     Route: 048
     Dates: end: 20060925
  3. SPECIAFOLDINE [Concomitant]
     Indication: ANAEMIA
     Route: 048
     Dates: start: 20060914
  4. THERALENE [Concomitant]
     Indication: SLEEP DISORDER
     Route: 048
     Dates: start: 20060914
  5. TENSTATEN [Concomitant]
     Indication: UNEVALUABLE EVENT
     Route: 065
  6. DIFFU K [Concomitant]
     Indication: UNEVALUABLE EVENT
     Route: 065
  7. TRIATEC [Concomitant]
     Indication: UNEVALUABLE EVENT
     Route: 065
  8. ZANIDIP [Concomitant]
     Indication: UNEVALUABLE EVENT
     Route: 065
  9. LASIX [Concomitant]
     Indication: CARDIAC FAILURE
     Route: 065
     Dates: start: 20060924

REACTIONS (6)
  - ANAEMIA [None]
  - HAEMATOMA [None]
  - INTERNATIONAL NORMALISED RATIO INCREASED [None]
  - MELAENA [None]
  - PERITONEAL HAEMORRHAGE [None]
  - RETROPERITONEAL HAEMATOMA [None]
